FAERS Safety Report 15220329 (Version 1)
Quarter: 2018Q4

REPORT INFORMATION
  Report Type: Report from Study
  Country: NL (occurrence: NL)
  Receive Date: 20180731
  Receipt Date: 20180731
  Transmission Date: 20190204
  Serious: Yes (Congenital Anomaly, Other)
  Sender: FDA-Public Use
  Company Number: NL-AUROBINDO-AUR-APL-2017-44227

PATIENT
  Age: 16 Year
  Sex: Male
  Weight: 49 kg

DRUGS (7)
  1. EPIRUBICIN [Suspect]
     Active Substance: EPIRUBICIN
     Indication: EMBRYONAL RHABDOMYOSARCOMA
     Dosage: 5 MILLIGRAM/KILOGRAM (TOTAL CUMULATIVE DOSE)
     Route: 065
  2. CARBOPLATIN. [Suspect]
     Active Substance: CARBOPLATIN
     Indication: EMBRYONAL RHABDOMYOSARCOMA
     Dosage: 34 MILLIGRAM/KILOGRAM
     Route: 065
  3. IFOSFAMIDE. [Suspect]
     Active Substance: IFOSFAMIDE
     Indication: EMBRYONAL RHABDOMYOSARCOMA
     Dosage: 3 CYCLES (IVA)/2 CYCLES (IVE)
     Route: 065
  4. VINCRISTINE [Suspect]
     Active Substance: VINCRISTINE
     Indication: EMBRYONAL RHABDOMYOSARCOMA
     Dosage: 3 CYCLES (IVA)/2 CYCLES (IVE)
     Route: 065
  5. DACTINOMYCIN [Suspect]
     Active Substance: DACTINOMYCIN
     Indication: EMBRYONAL RHABDOMYOSARCOMA
     Dosage: 3 CYCLES
     Route: 065
  6. ETOPOSIDE. [Suspect]
     Active Substance: ETOPOSIDE
     Indication: EMBRYONAL RHABDOMYOSARCOMA
     Dosage: 2 CYCLES (IVE)
     Route: 065
  7. ACTINOMYCIN D [Suspect]
     Active Substance: DACTINOMYCIN
     Indication: EMBRYONAL RHABDOMYOSARCOMA
     Dosage: 3 CYCLES
     Route: 065

REACTIONS (10)
  - Osteopenia [Unknown]
  - Product use in unapproved indication [Unknown]
  - Developmental delay [Unknown]
  - Product use issue [Unknown]
  - Basal cell naevus syndrome [Unknown]
  - Neurodevelopmental disorder [Unknown]
  - Drug resistance [Unknown]
  - Nervous system disorder [Unknown]
  - Delayed puberty [Unknown]
  - Body height below normal [Unknown]
